FAERS Safety Report 17691854 (Version 3)
Quarter: 2020Q3

REPORT INFORMATION
  Report Type: Spontaneous
  Country: US (occurrence: US)
  Receive Date: 20200422
  Receipt Date: 20200904
  Transmission Date: 20201102
  Serious: No
  Sender: FDA-Public Use
  Company Number: US-ASTRAZENECA-2020SE51859

PATIENT
  Age: 68 Year
  Sex: Female

DRUGS (1)
  1. SYMBICORT [Suspect]
     Active Substance: BUDESONIDE\FORMOTEROL FUMARATE DIHYDRATE
     Dosage: 160MCG/4.5MCG 120 INHALATIONS UNKNOWN
     Route: 055

REACTIONS (5)
  - Dysgeusia [Unknown]
  - Pharyngeal hypoaesthesia [Unknown]
  - Speech disorder [Unknown]
  - Feeling abnormal [Unknown]
  - Product taste abnormal [Unknown]
